FAERS Safety Report 12539273 (Version 1)
Quarter: 2016Q3

REPORT INFORMATION
  Report Type: Spontaneous
  Country: GB (occurrence: GB)
  Receive Date: 20160708
  Receipt Date: 20160708
  Transmission Date: 20161109
  Serious: Yes (Other)
  Sender: FDA-Public Use
  Company Number: GB-TEVA-672106ACC

PATIENT
  Age: 41 Year
  Sex: Female

DRUGS (2)
  1. CITALOPRAM HYDROCHLORIDE [Suspect]
     Active Substance: CITALOPRAM HYDROCHLORIDE
     Indication: DEPRESSION
     Route: 048
  2. FLIXOTIDE [Concomitant]
     Active Substance: FLUTICASONE PROPIONATE

REACTIONS (6)
  - Abnormal dreams [Not Recovered/Not Resolved]
  - Insomnia [Not Recovered/Not Resolved]
  - Muscle twitching [Not Recovered/Not Resolved]
  - Yawning [Not Recovered/Not Resolved]
  - Confusional state [Not Recovered/Not Resolved]
  - Memory impairment [Not Recovered/Not Resolved]
